FAERS Safety Report 8070431-X (Version None)
Quarter: 2012Q1

REPORT INFORMATION
  Report Type: 
  Country: None (occurrence: None)
  Receive Date: 20120125
  Receipt Date: 20111116
  Transmission Date: 20120608
  Serious: Yes (Other)
  Sender: FDA-Public Use
  Company Number: PL-ROCHE-1031310

PATIENT
  Age: 59 Year
  Sex: Female

DRUGS (2)
  1. TAMOXIFEN CITRATE [Concomitant]
     Dates: start: 20080701
  2. XELODA [Suspect]
     Indication: BREAST CANCER
     Dates: start: 20100301

REACTIONS (1)
  - METASTASES TO CENTRAL NERVOUS SYSTEM [None]
